FAERS Safety Report 18237171 (Version 2)
Quarter: 2020Q3

REPORT INFORMATION
  Report Type: Spontaneous
  Country: US (occurrence: US)
  Receive Date: 20200907
  Receipt Date: 20200910
  Transmission Date: 20201103
  Serious: Yes (Life-Threatening)
  Sender: FDA-Public Use
  Company Number: US-CELGENEUS-USA-20200803793

PATIENT
  Age: 61 Year
  Sex: Female

DRUGS (11)
  1. REVLIMID [Suspect]
     Active Substance: LENALIDOMIDE
     Dosage: 15 MILLIGRAM
     Route: 048
     Dates: start: 201912, end: 20200811
  2. POTASSIUM CL [Concomitant]
     Active Substance: POTASSIUM CHLORIDE
     Indication: HYPOKALAEMIA
     Dosage: 10 MILLIEQUIVALENTS
     Route: 048
  3. PYRIDOXINE [Concomitant]
     Active Substance: PYRIDOXINE
     Indication: NEUROPATHY PERIPHERAL
  4. PYRIDOXINE [Concomitant]
     Active Substance: PYRIDOXINE
     Indication: LYMPHOMA
     Dosage: 50 MILLIGRAM
     Route: 048
  5. L?CARNITINE [Concomitant]
     Active Substance: LEVOCARNITINE
     Indication: NEUROPATHY PERIPHERAL
  6. THIAMINE. [Concomitant]
     Active Substance: THIAMINE
     Indication: LYMPHOMA
     Dosage: 100 MILLIGRAM
     Route: 048
  7. THIAMINE. [Concomitant]
     Active Substance: THIAMINE
     Indication: NEUROPATHY PERIPHERAL
  8. L?CARNITINE [Concomitant]
     Active Substance: LEVOCARNITINE
     Indication: LYMPHOMA
     Dosage: 1500 MILLIGRAM
     Route: 048
  9. REVLIMID [Suspect]
     Active Substance: LENALIDOMIDE
     Indication: B-CELL LYMPHOMA
     Dosage: 20 MILLIGRAM
     Route: 048
     Dates: start: 20191018
  10. RITUXAN [Suspect]
     Active Substance: RITUXIMAB
     Indication: PRODUCT USED FOR UNKNOWN INDICATION
     Route: 065
  11. ASPIRIN. [Concomitant]
     Active Substance: ASPIRIN
     Indication: LYMPHOMA
     Dosage: 81 MILLIGRAM
     Route: 048

REACTIONS (1)
  - Neutropenia [Recovered/Resolved]

NARRATIVE: CASE EVENT DATE: 20200811
